FAERS Safety Report 8162751-5 (Version None)
Quarter: 2012Q1

REPORT INFORMATION
  Report Type: 
  Country: None (occurrence: None)
  Receive Date: 20120224
  Receipt Date: 20120209
  Transmission Date: 20120608
  Serious: Yes (Hospitalization)
  Sender: FDA-Public Use
  Company Number: GB-RANBAXY-2009RR-28991

PATIENT
  Age: 37 Year
  Sex: Male

DRUGS (6)
  1. PIPERACILLIN AND TAZOBACTAM [Suspect]
     Indication: NEUTROPENIC SEPSIS
     Dosage: UNK
     Route: 065
     Dates: start: 20080101, end: 20080101
  2. AMOXICILLIN [Suspect]
     Indication: TOOTH INFECTION
     Dosage: UNK
     Route: 065
     Dates: start: 20080101
  3. CLINDAMYCIN [Suspect]
     Indication: NEUTROPENIC SEPSIS
     Dosage: UNK
     Route: 065
     Dates: start: 20080101, end: 20080101
  4. METRONIDAZOLE [Suspect]
     Indication: NEUTROPENIC SEPSIS
     Dosage: UNK
     Route: 065
     Dates: start: 20080101, end: 20080101
  5. GENTAMICIN [Suspect]
     Indication: NEUTROPENIC SEPSIS
     Dosage: UNK
     Route: 065
     Dates: start: 20080101, end: 20080101
  6. CIPROFLOXACIN [Suspect]
     Indication: NEUTROPENIC SEPSIS
     Dosage: UNK
     Route: 065
     Dates: start: 20080101, end: 20080101

REACTIONS (13)
  - DRUG RASH WITH EOSINOPHILIA AND SYSTEMIC SYMPTOMS [None]
  - HEPATIC FAILURE [None]
  - RENAL FAILURE [None]
  - PNEUMONITIS [None]
  - HEADACHE [None]
  - EOSINOPHILIA [None]
  - NEUTROPENIA [None]
  - BACK PAIN [None]
  - VOMITING [None]
  - ACUTE RESPIRATORY DISTRESS SYNDROME [None]
  - RASH MACULO-PAPULAR [None]
  - FEELING HOT [None]
  - ABDOMINAL PAIN UPPER [None]
